FAERS Safety Report 17295036 (Version 5)
Quarter: 2020Q2

REPORT INFORMATION
  Report Type: Report from Study
  Country: US (occurrence: US)
  Receive Date: 20200121
  Receipt Date: 20200413
  Transmission Date: 20200713
  Serious: Yes (Hospitalization)
  Sender: FDA-Public Use
  Company Number: NVSC2020US007415

PATIENT
  Age: 54 Year
  Sex: Female
  Weight: 76.1 kg

DRUGS (6)
  1. NAVITOCLAX [Suspect]
     Active Substance: NAVITOCLAX
     Dosage: 250 MG ON 8-28 DAYS
     Route: 048
  2. POTASSIUM CHLORIDE. [Concomitant]
     Active Substance: POTASSIUM CHLORIDE
     Indication: ELECTROLYTE SUBSTITUTION THERAPY
     Dosage: 20 MEQ
     Route: 042
  3. NAVITOCLAX [Suspect]
     Active Substance: NAVITOCLAX
     Indication: NEOPLASM
     Dosage: 150 MG ON 1-7 DAYS
     Route: 048
     Dates: start: 20190830
  4. MAGNESIUM OXIDE. [Concomitant]
     Active Substance: MAGNESIUM OXIDE
     Indication: PROPHYLAXIS
     Dosage: 800 MG
     Route: 048
  5. GSK1120212 [Suspect]
     Active Substance: TRAMETINIB
     Indication: NEOPLASM
     Dosage: 2 MG, PO ON 1-14 DAYS
     Route: 048
     Dates: start: 20190830
  6. LOPERAMIDE [Concomitant]
     Active Substance: LOPERAMIDE
     Indication: DIARRHOEA
     Dosage: 2 MG
     Route: 048

REACTIONS (6)
  - Aspartate aminotransferase increased [Recovered/Resolved with Sequelae]
  - Dehydration [Recovering/Resolving]
  - Fatigue [Recovering/Resolving]
  - Decreased appetite [Recovering/Resolving]
  - Blood bilirubin increased [Recovered/Resolved with Sequelae]
  - Urinary tract infection [Recovering/Resolving]

NARRATIVE: CASE EVENT DATE: 20191219
